FAERS Safety Report 8135387-X (Version None)
Quarter: 2012Q1

REPORT INFORMATION
  Report Type: 
  Country: None (occurrence: None)
  Receive Date: 20120214
  Receipt Date: 20120206
  Transmission Date: 20120608
  Serious: Yes (Life-Threatening, Hospitalization, Other)
  Sender: FDA-Public Use
  Company Number: JP-CELGENEUS-087-50794-12021032

PATIENT
  Age: 78 Year
  Sex: Male
  Weight: 71 kg

DRUGS (13)
  1. RED BLOOD CELLS [Concomitant]
     Route: 041
  2. FLIVAS [Concomitant]
     Route: 065
  3. LEVOFLOXACIN [Concomitant]
     Route: 065
  4. VIDAZA [Suspect]
     Indication: MYELODYSPLASTIC SYNDROME
     Dosage: 75 MILLIGRAM/SQ. METER
     Route: 041
     Dates: start: 20111018, end: 20111022
  5. SALAGEN [Concomitant]
     Route: 065
  6. FLUCONAZOLE [Concomitant]
     Route: 065
  7. ZOLPIDEM [Concomitant]
     Route: 065
  8. GRAN [Concomitant]
     Route: 065
     Dates: start: 20111023
  9. OMEPRAZOLE [Concomitant]
     Route: 065
  10. MEROPENEM [Concomitant]
     Route: 065
     Dates: start: 20111018, end: 20111020
  11. MEROPENEM [Concomitant]
     Route: 065
     Dates: start: 20111020
  12. PLATELETS [Concomitant]
     Route: 041
  13. GRAN [Concomitant]
     Route: 065
     Dates: start: 20111020

REACTIONS (2)
  - FEBRILE NEUTROPENIA [None]
  - NEUTROPHIL COUNT DECREASED [None]
